FAERS Safety Report 9482093 (Version 2)
Quarter: 2013Q3

REPORT INFORMATION
  Report Type: Spontaneous
  Country: PT (occurrence: PT)
  Receive Date: 20130828
  Receipt Date: 20130828
  Transmission Date: 20140515
  Serious: Yes (Other)
  Sender: FDA-Public Use
  Company Number: PHHY2013PT043065

PATIENT
  Age: 72 Year
  Sex: Female

DRUGS (6)
  1. TOBI PODHALER [Suspect]
     Indication: BRONCHIECTASIS
     Dosage: 4 DF, (4 CAPSULES EVERY 12 HOURS)
     Dates: start: 20130411, end: 20130424
  2. SYMBICORT [Concomitant]
     Dosage: UNK UKN, UNK
  3. ATROVENT [Concomitant]
     Dosage: UNK UKN, UNK
  4. CORTICOSTEROID NOS [Concomitant]
     Dosage: 6 MG, QD
  5. PLAQUINOL [Concomitant]
     Dosage: UNK UKN, UNK
  6. METHOTREXATE [Concomitant]
     Dosage: UNK UKN, UNK
     Dates: start: 201303

REACTIONS (3)
  - Haemoptysis [Unknown]
  - Stenotrophomonas test positive [Unknown]
  - Haemoglobin decreased [Unknown]
